FAERS Safety Report 4293292-3 (Version None)
Quarter: 2004Q1

REPORT INFORMATION
  Report Type: 
  Country: None (occurrence: None)
  Receive Date: 20040126
  Receipt Date: 20031017
  Transmission Date: 20041129
  Serious: No
  Sender: FDA-Public Use
  Company Number: USA031050286

PATIENT
  Age: 59 Year
  Sex: Female

DRUGS (1)
  1. FORTEO [Suspect]
     Indication: OSTEOPOROSIS
     Dosage: 20 UG/DAY
     Dates: start: 20030930

REACTIONS (6)
  - ASTHENIA [None]
  - CONSTIPATION [None]
  - MUSCULAR WEAKNESS [None]
  - NAUSEA [None]
  - RASH PAPULAR [None]
  - VOMITING [None]
